FAERS Safety Report 16382937 (Version 2)
Quarter: 2019Q2

REPORT INFORMATION
  Report Type: Spontaneous
  Country: AR (occurrence: AR)
  Receive Date: 20190603
  Receipt Date: 20190603
  Transmission Date: 20190711
  Serious: Yes (Other)
  Sender: FDA-Public Use
  Company Number: PHHY2019AR126197

PATIENT
  Sex: Female

DRUGS (1)
  1. SIMBRINZA [Suspect]
     Active Substance: BRIMONIDINE TARTRATE\BRINZOLAMIDE
     Indication: GLAUCOMA
     Dosage: 2 GTT, QD
     Route: 047

REACTIONS (6)
  - Intraocular pressure increased [Unknown]
  - Product quality issue [Unknown]
  - Dry eye [Unknown]
  - Cataract [Unknown]
  - Memory impairment [Unknown]
  - Conjunctivitis [Unknown]
